FAERS Safety Report 24843090 (Version 1)
Quarter: 2025Q1

REPORT INFORMATION
  Report Type: Report from Study
  Country: US (occurrence: US)
  Receive Date: 20250115
  Receipt Date: 20250115
  Transmission Date: 20250409
  Serious: No
  Sender: HRA PHARMA
  Company Number: US-ORG100014127-2024000332

PATIENT
  Age: 75 Year
  Sex: Female

DRUGS (11)
  1. LYSODREN [Suspect]
     Active Substance: MITOTANE
     Indication: Benign neoplasm of adrenal gland
     Dosage: 1 TABLET BY MOUTH TWICE DAILY
     Route: 048
     Dates: start: 20241108
  2. FOLIC ACID TAB 1000MCG [Concomitant]
     Indication: Product used for unknown indication
  3. HYDROXYZ HCL TAB 25MG [Concomitant]
     Indication: Product used for unknown indication
  4. LANSOPRAZOLE CAP 30MG DR [Concomitant]
     Indication: Product used for unknown indication
  5. LEFLUNOMIDE [Concomitant]
     Active Substance: LEFLUNOMIDE
     Indication: Product used for unknown indication
  6. MULTIVITAMIN TAB ADULTS [Concomitant]
     Indication: Product used for unknown indication
  7. ONDANSETRON [Concomitant]
     Active Substance: ONDANSETRON
     Indication: Product used for unknown indication
  8. PREDNISONE [Concomitant]
     Active Substance: PREDNISONE
     Indication: Product used for unknown indication
  9. PROCHLORPER TAB 10MG [Concomitant]
     Indication: Product used for unknown indication
  10. SULFASALAZINE TAB 500MG [Concomitant]
     Indication: Product used for unknown indication
  11. TRAZODONE [Concomitant]
     Active Substance: TRAZODONE HYDROCHLORIDE
     Indication: Product used for unknown indication

REACTIONS (1)
  - Off label use [Unknown]

NARRATIVE: CASE EVENT DATE: 20241108
